FAERS Safety Report 4303828-1 (Version None)
Quarter: 2004Q1

REPORT INFORMATION
  Report Type: 
  Country: None (occurrence: None)
  Receive Date: 20040218
  Receipt Date: 20031102
  Transmission Date: 20041129
  Serious: Yes (Death, Hospitalization, Other)
  Sender: FDA-Public Use
  Company Number: KII-2003-0007147

PATIENT
  Age: 45 Year
  Sex: Female
  Weight: 104.3 kg

DRUGS (2)
  1. MORPHINE SULFATE [Suspect]
     Indication: PAIN
     Dosage: ORAL
     Route: 048
  2. ACETAMINOPHEN AND HYDROCODONE BITARTRATE [Suspect]
     Indication: BACK PAIN
     Dosage: ORAL
     Route: 048

REACTIONS (22)
  - ALANINE AMINOTRANSFERASE INCREASED [None]
  - APNOEA [None]
  - AREFLEXIA [None]
  - ASPARTATE AMINOTRANSFERASE INCREASED [None]
  - ASPIRATION [None]
  - BLOOD ALKALINE PHOSPHATASE INCREASED [None]
  - BLOOD CREATINE PHOSPHOKINASE INCREASED [None]
  - BLOOD CREATININE INCREASED [None]
  - BLOOD GLUCOSE INCREASED [None]
  - BLOOD POTASSIUM INCREASED [None]
  - BLOOD PRESSURE INCREASED [None]
  - BLOOD UREA INCREASED [None]
  - BODY TEMPERATURE DECREASED [None]
  - BODY TEMPERATURE INCREASED [None]
  - COMA [None]
  - DRUG TOXICITY [None]
  - HEART RATE INCREASED [None]
  - HYPOTENSION [None]
  - ILL-DEFINED DISORDER [None]
  - OXYGEN SATURATION DECREASED [None]
  - PUPIL FIXED [None]
  - WHEEZING [None]
